FAERS Safety Report 16929790 (Version 2)
Quarter: 2019Q4

REPORT INFORMATION
  Report Type: Spontaneous
  Country: US (occurrence: US)
  Receive Date: 20191017
  Receipt Date: 20191121
  Transmission Date: 20200122
  Serious: Yes (Other)
  Sender: FDA-Public Use
  Company Number: US-PFIZER INC-2019445957

PATIENT
  Age: 55 Year
  Sex: Female

DRUGS (1)
  1. IBRANCE [Suspect]
     Active Substance: PALBOCICLIB
     Indication: BREAST CANCER FEMALE
     Dosage: 75 MG, CYCLIC (TAKE 1 CAPSULE BY MOUTH DAILY FOR 3 WEEKS THEN 1 WEEK OFF.)
     Route: 048

REACTIONS (3)
  - Abdominal discomfort [Recovered/Resolved]
  - Loss of consciousness [Recovered/Resolved]
  - Heart rate increased [Recovered/Resolved]
